FAERS Safety Report 5914813-8 (Version None)
Quarter: 2008Q4

REPORT INFORMATION
  Report Type: 
  Country: None (occurrence: None)
  Receive Date: 20081010
  Receipt Date: 20080930
  Transmission Date: 20090506
  Serious: Yes (Death, Other)
  Sender: FDA-Public Use
  Company Number: SE-ELI_LILLY_AND_COMPANY-SE200810000430

PATIENT
  Sex: Male

DRUGS (9)
  1. GEMZAR [Suspect]
     Indication: PANCREATIC CARCINOMA
     Dosage: UNK, UNKNOWN
     Route: 042
     Dates: start: 20080326, end: 20080515
  2. CREON [Concomitant]
     Dosage: UNK, UNKNOWN
     Route: 065
  3. ZOLPIDEM TARTRATE [Concomitant]
     Dosage: 10 MG, UNKNOWN
     Route: 065
  4. PRIMPERAN /00041901/ [Concomitant]
     Dosage: 10 MG, UNKNOWN
     Route: 065
  5. DICLOFENAC [Concomitant]
     Dosage: 50 MG, UNKNOWN
     Route: 065
  6. MOVICOL [Concomitant]
     Dosage: UNK, UNKNOWN
     Route: 048
  7. TRYPTIZOL [Concomitant]
     Dosage: 10 MG, UNKNOWN
     Route: 065
  8. BETAPRED [Concomitant]
     Dosage: 0.5 MG, UNKNOWN
     Route: 065
  9. MORPHINE [Concomitant]
     Dosage: 10 MG, UNKNOWN
     Route: 065

REACTIONS (4)
  - ASTHENIA [None]
  - CIRCULATORY COLLAPSE [None]
  - DIZZINESS [None]
  - PULMONARY CONGESTION [None]
